FAERS Safety Report 10466252 (Version 1)
Quarter: 2014Q3

REPORT INFORMATION
  Report Type: Spontaneous
  Country: US (occurrence: None)
  Receive Date: 20140918
  Receipt Date: 20140918
  Transmission Date: 20150326
  Serious: Yes (Other)
  Sender: FDA-Public Use
  Company Number: ADR-2014-01644

PATIENT
  Age: 31 Year
  Sex: Female

DRUGS (1)
  1. LIORESAL [Suspect]
     Active Substance: BACLOFEN
     Indication: MUSCLE SPASTICITY
     Dosage: 1148 MCG/DAY

REACTIONS (6)
  - Muscle spasticity [None]
  - Muscle spasms [None]
  - Extradural haematoma [None]
  - Device dislocation [None]
  - Condition aggravated [None]
  - Spinal cord injury [None]
